FAERS Safety Report 9025915 (Version 1)
Quarter: 2012Q4

REPORT INFORMATION
  Report Type: 
  Country: US (occurrence: None)
  Receive Date: 20121214
  Receipt Date: 20121214
  Transmission Date: 20130627
  Serious: Yes (Death, Hospitalization)
  Sender: FDA-Public Use
  Company Number: None

PATIENT
  Sex: Male
  Weight: 19.4 kg

DRUGS (2)
  1. MITOXANTRONE HYDROCHLORIDE [Suspect]
     Dates: end: 20121101
  2. CYTARABINE [Suspect]
     Dates: end: 20121030

REACTIONS (8)
  - Pyrexia [None]
  - Neutropenia [None]
  - Capnocytophaga test positive [None]
  - Cardiac disorder [None]
  - Blood pressure decreased [None]
  - Metabolic acidosis [None]
  - Ejection fraction decreased [None]
  - Cardio-respiratory arrest [None]
